FAERS Safety Report 6397794-5 (Version None)
Quarter: 2009Q4

REPORT INFORMATION
  Report Type: 
  Country: None (occurrence: None)
  Receive Date: 20091007
  Receipt Date: 20090923
  Transmission Date: 20100525
  Serious: Yes (Other)
  Sender: FDA-Public Use
  Company Number: 2009AP003889

PATIENT

DRUGS (1)
  1. PAROXETINE HCL [Suspect]
     Dosage: 20 MG; PO
     Route: 048

REACTIONS (6)
  - ACTIVITIES OF DAILY LIVING IMPAIRED [None]
  - ANXIETY [None]
  - DRUG WITHDRAWAL SYNDROME [None]
  - DRY SKIN [None]
  - FATIGUE [None]
  - NIGHTMARE [None]
